FAERS Safety Report 11620056 (Version 4)
Quarter: 2017Q1

REPORT INFORMATION
  Report Type: Spontaneous
  Country: US (occurrence: US)
  Receive Date: 20151012
  Receipt Date: 20170111
  Transmission Date: 20170428
  Serious: Yes (Other)
  Sender: FDA-Public Use
  Company Number: US-BAYER-2015-433277

PATIENT
  Age: 49 Year
  Sex: Female

DRUGS (2)
  1. CLIMARA PRO [Suspect]
     Active Substance: ESTRADIOL\LEVONORGESTREL
     Indication: ARRHYTHMIA
     Dosage: UNK
     Route: 062
     Dates: start: 20150916
  2. CLIMARA PRO [Suspect]
     Active Substance: ESTRADIOL\LEVONORGESTREL
     Indication: HOT FLUSH
     Dosage: UNK
     Route: 062

REACTIONS (10)
  - Skin irritation [None]
  - Product physical issue [None]
  - Hot flush [Not Recovered/Not Resolved]
  - False positive investigation result [None]
  - Adenocarcinoma of the cervix [None]
  - Cellulitis [None]
  - Device material issue [None]
  - Product adhesion issue [None]
  - Drug ineffective [Not Recovered/Not Resolved]
  - Skin infection [None]

NARRATIVE: CASE EVENT DATE: 2015
